FAERS Safety Report 25332893 (Version 3)
Quarter: 2025Q3

REPORT INFORMATION
  Report Type: Spontaneous
  Country: US (occurrence: US)
  Receive Date: 20250519
  Receipt Date: 20250917
  Transmission Date: 20251021
  Serious: No
  Sender: SANOFI AVENTIS
  Company Number: US-SA-2025SA142003

PATIENT
  Sex: Female
  Weight: 71.66 kg

DRUGS (4)
  1. DUPIXENT [Suspect]
     Active Substance: DUPILUMAB
     Indication: Asthma
     Dosage: 300 MG, QOW
     Route: 058
  2. DUPIXENT [Suspect]
     Active Substance: DUPILUMAB
     Indication: Eosinophilia
  3. PREDNISONE [Concomitant]
     Active Substance: PREDNISONE
  4. TEZSPIRE [Concomitant]
     Active Substance: TEZEPELUMAB-EKKO

REACTIONS (8)
  - Pain [Unknown]
  - Abdominal pain upper [Unknown]
  - Feeling abnormal [Unknown]
  - Myalgia [Unknown]
  - Anosmia [Unknown]
  - Dyspnoea [Unknown]
  - Nasal congestion [Unknown]
  - Drug ineffective [Unknown]
